FAERS Safety Report 17088233 (Version 2)
Quarter: 2020Q1

REPORT INFORMATION
  Report Type: Spontaneous
  Country: US (occurrence: US)
  Receive Date: 20191128
  Receipt Date: 20200110
  Transmission Date: 20200409
  Serious: Yes (Hospitalization, Other)
  Sender: FDA-Public Use
  Company Number: US-PFIZER INC-2019512119

PATIENT
  Age: 75 Year
  Sex: Female
  Weight: 59 kg

DRUGS (2)
  1. TIKOSYN [Suspect]
     Active Substance: DOFETILIDE
     Indication: ATRIAL FIBRILLATION
     Dosage: 250 UG, UNK (WAS ON 250MCG PRIOR TO 125MCG)
     Dates: start: 201705
  2. TIKOSYN [Suspect]
     Active Substance: DOFETILIDE
     Dosage: 125 UG, 2X/DAY (125MCG 1 CAPSULE BY MOUTH TWICE A DAY)
     Route: 048
     Dates: start: 201705, end: 2019

REACTIONS (7)
  - Atrial fibrillation [Recovered/Resolved]
  - Rash [Unknown]
  - Skin discolouration [Unknown]
  - Erythema [Recovered/Resolved]
  - Measles [Unknown]
  - Dry skin [Unknown]
  - Urticaria [Unknown]

NARRATIVE: CASE EVENT DATE: 2017
